FAERS Safety Report 5169769-5 (Version None)
Quarter: 2006Q4

REPORT INFORMATION
  Report Type: 
  Country: None (occurrence: None)
  Receive Date: 20061212
  Receipt Date: 20060925
  Transmission Date: 20070319
  Serious: Yes (Hospitalization)
  Sender: FDA-Public Use
  Company Number: FRWYE012625SEP06

PATIENT
  Sex: Female

DRUGS (1)
  1. ENBREL [Suspect]
     Indication: PSORIASIS
     Route: 058
     Dates: start: 20060123, end: 20060702

REACTIONS (2)
  - BREAST CANCER STAGE III [None]
  - TUMOUR EMBOLISM [None]
